FAERS Safety Report 8158080-6 (Version None)
Quarter: 2012Q1

REPORT INFORMATION
  Report Type: 
  Country: None (occurrence: None)
  Receive Date: 20120222
  Receipt Date: 20120216
  Transmission Date: 20120608
  Serious: Yes (Death)
  Sender: FDA-Public Use
  Company Number: GB-MERCK-0904GBR00016

PATIENT
  Age: 79 Year
  Sex: Male
  Weight: 68 kg

DRUGS (10)
  1. CANDESARTAN [Concomitant]
     Route: 065
  2. ACETYLCYSTEINE [Suspect]
     Indication: IDIOPATHIC PULMONARY FIBROSIS
     Route: 048
     Dates: start: 20081114, end: 20081226
  3. AZATHIOPRINE [Suspect]
     Indication: IDIOPATHIC PULMONARY FIBROSIS
     Route: 048
     Dates: start: 20081114, end: 20081226
  4. AZATHIOPRINE [Suspect]
     Indication: PULMONARY ARTERIAL HYPERTENSION
     Route: 048
     Dates: start: 20081114, end: 20081226
  5. WARFARIN [Concomitant]
     Indication: MITRAL VALVE REPLACEMENT
     Route: 065
     Dates: start: 20050101
  6. ATORVASTATIN [Concomitant]
     Route: 065
  7. ACETYLCYSTEINE [Suspect]
     Indication: PULMONARY ARTERIAL HYPERTENSION
     Route: 048
     Dates: start: 20081114, end: 20081226
  8. OMEPRAZOLE [Suspect]
     Route: 048
     Dates: start: 20081114
  9. FOSAMAX [Suspect]
     Route: 048
     Dates: start: 20081114
  10. PREDNISOLONE [Suspect]
     Route: 065

REACTIONS (4)
  - ERYTHEMA [None]
  - SEPSIS [None]
  - TOXIC EPIDERMAL NECROLYSIS [None]
  - NEUTROPENIA [None]
